FAERS Safety Report 8031359-4 (Version None)
Quarter: 2011Q4

REPORT INFORMATION
  Report Type: 
  Country: None (occurrence: None)
  Receive Date: 20111202
  Receipt Date: 20100827
  Transmission Date: 20120403
  Serious: Yes (Hospitalization, Other)
  Sender: FDA-Public Use
  Company Number: 2010SP046375

PATIENT
  Age: 26 Year
  Sex: Female
  Weight: 80.7403 kg

DRUGS (2)
  1. NUVARING [Suspect]
     Indication: CONTRACEPTION
     Dates: start: 20070701
  2. NUVARING [Suspect]
     Indication: CONTRACEPTION
     Dates: start: 20090101, end: 20090820

REACTIONS (4)
  - PULMONARY EMBOLISM [None]
  - INJURY [None]
  - DEEP VEIN THROMBOSIS [None]
  - NASOPHARYNGITIS [None]
